FAERS Safety Report 4997442-2 (Version None)
Quarter: 2006Q2

REPORT INFORMATION
  Report Type: 
  Country: None (occurrence: None)
  Receive Date: 20060509
  Receipt Date: 20041216
  Transmission Date: 20061013
  Serious: Yes (Hospitalization, Disabling)
  Sender: FDA-Public Use
  Company Number: US-MERCK-0412USA02134

PATIENT
  Age: 51 Year
  Sex: Female
  Weight: 66 kg

DRUGS (2)
  1. VIOXX [Suspect]
     Indication: RHEUMATOID ARTHRITIS
     Route: 048
     Dates: start: 19990101, end: 20040101
  2. MICARDIS [Concomitant]
     Route: 065

REACTIONS (12)
  - ARTHRALGIA [None]
  - CAROTID ARTERY OCCLUSION [None]
  - CEREBROVASCULAR ACCIDENT [None]
  - CORONARY ARTERY STENOSIS [None]
  - DERMAL CYST [None]
  - FOOT OPERATION [None]
  - HYPERKERATOSIS [None]
  - PAIN [None]
  - POSTNASAL DRIP [None]
  - PRESCRIBED OVERDOSE [None]
  - RENAL DISORDER [None]
  - URINARY TRACT INFECTION [None]
